FAERS Safety Report 6875773-9 (Version None)
Quarter: 2010Q3

REPORT INFORMATION
  Report Type: 
  Country: None (occurrence: None)
  Receive Date: 20100727
  Receipt Date: 20070919
  Transmission Date: 20110219
  Serious: Yes (Other)
  Sender: FDA-Public Use
  Company Number: US-PFIZER INC-2006151743

PATIENT
  Sex: Male
  Weight: 158.8 kg

DRUGS (3)
  1. CELEBREX [Suspect]
     Route: 048
  2. BEXTRA [Suspect]
     Indication: ARTHRITIS
     Route: 048
  3. VIOXX [Suspect]
     Route: 048

REACTIONS (3)
  - BLOOD PRESSURE ABNORMAL [None]
  - CHEST PAIN [None]
  - OEDEMA [None]
